FAERS Safety Report 13834337 (Version 2)
Quarter: 2017Q3

REPORT INFORMATION
  Report Type: Spontaneous
  Country: US (occurrence: US)
  Receive Date: 20170804
  Receipt Date: 20170831
  Transmission Date: 20171127
  Serious: No
  Sender: FDA-Public Use
  Company Number: US-PFIZER INC-2017333154

PATIENT
  Age: 57 Year
  Sex: Male

DRUGS (2)
  1. XELJANZ XR [Suspect]
     Active Substance: TOFACITINIB CITRATE
     Indication: RHEUMATOID ARTHRITIS
     Dosage: 11 MG, 1X/DAY
     Route: 048
     Dates: start: 20170710
  2. INSULIN LISPRO [Suspect]
     Active Substance: INSULIN LISPRO
     Dosage: UNK
     Dates: start: 201707

REACTIONS (4)
  - Rash pruritic [Unknown]
  - Rash generalised [Unknown]
  - Rash papular [Unknown]
  - Diarrhoea [Unknown]

NARRATIVE: CASE EVENT DATE: 201707
